FAERS Safety Report 9180899 (Version 1)
Quarter: 2013Q1

REPORT INFORMATION
  Report Type: Spontaneous
  Country: AU (occurrence: AU)
  Receive Date: 20130322
  Receipt Date: 20130322
  Transmission Date: 20140127
  Serious: Yes (Other)
  Sender: FDA-Public Use
  Company Number: PHHY2013AU026409

PATIENT
  Age: 79 Year
  Sex: Female

DRUGS (8)
  1. ZOLEDRONATE [Suspect]
     Dosage: UNK UKN, UNK
  2. FOLIC ACID [Concomitant]
     Dosage: UNK
  3. GLICLAZIDE [Concomitant]
     Dosage: UNK
  4. METFORMIN HYDROCHLORIDE [Concomitant]
     Dosage: UNK
  5. METHOTREXATE [Concomitant]
     Dosage: UNK
  6. PANTOPRAZOLE [Concomitant]
     Dosage: UNK
  7. PREDNISOLONE [Concomitant]
     Dosage: UNK
  8. SIMVASTATIN [Concomitant]
     Dosage: UNK

REACTIONS (6)
  - Chest pain [Unknown]
  - Gait disturbance [Unknown]
  - Muscular weakness [Unknown]
  - Nausea [Unknown]
  - Infusion related reaction [Unknown]
  - Lethargy [Unknown]
